FAERS Safety Report 15019799 (Version 2)
Quarter: 2018Q2

REPORT INFORMATION
  Report Type: Spontaneous
  Country: FR (occurrence: FR)
  Receive Date: 20180618
  Receipt Date: 20180629
  Transmission Date: 20180711
  Serious: Yes (Other)
  Sender: FDA-Public Use
  Company Number: FR-TEVA-2018-FR-907349

PATIENT
  Age: 67 Year
  Sex: Male

DRUGS (8)
  1. ZOPICLONE [Concomitant]
     Active Substance: ZOPICLONE
  2. MIRTAZAPINE. [Suspect]
     Active Substance: MIRTAZAPINE
     Indication: PSYCHOTIC DISORDER
     Dates: start: 201606
  3. RISPERIDONE. [Suspect]
     Active Substance: RISPERIDONE
     Indication: PSYCHOTIC DISORDER
     Dates: start: 2016
  4. PERMIXON [Concomitant]
     Active Substance: HERBALS\SAW PALMETTO
  5. SMECTA [Concomitant]
     Active Substance: MONTMORILLONITE
  6. LEPTICUR [Suspect]
     Active Substance: TROPATEPINE HYDROCHLORIDE
     Indication: PSYCHOTIC DISORDER
     Dates: start: 201606
  7. NEBIVOLOL. [Concomitant]
     Active Substance: NEBIVOLOL
  8. COUMADINE [Concomitant]
     Active Substance: WARFARIN SODIUM

REACTIONS (4)
  - Toxic skin eruption [Not Recovered/Not Resolved]
  - Infection [Not Recovered/Not Resolved]
  - Dermatosis [Not Recovered/Not Resolved]
  - Dermatitis psoriasiform [Not Recovered/Not Resolved]

NARRATIVE: CASE EVENT DATE: 201707
